FAERS Safety Report 14735248 (Version 1)
Quarter: 2018Q2

REPORT INFORMATION
  Report Type: Spontaneous
  Country: US (occurrence: US)
  Receive Date: 20180409
  Receipt Date: 20180409
  Transmission Date: 20180711
  Serious: Yes (Life-Threatening)
  Sender: FDA-Public Use
  Company Number: US-LPDUSPRD-20180543

PATIENT
  Age: 2 Month
  Weight: 4.3 kg

DRUGS (1)
  1. TRANEXAMIC ACID INJECTION(0517-0960-01) [Suspect]
     Active Substance: TRANEXAMIC ACID
     Dosage: 50MG/KG LOADING DOSE
     Route: 065

REACTIONS (4)
  - Off label use [Unknown]
  - Postoperative respiratory failure [Unknown]
  - Deep vein thrombosis [Unknown]
  - Seizure [Unknown]
